FAERS Safety Report 7249505-9 (Version None)
Quarter: 2011Q1

REPORT INFORMATION
  Report Type: 
  Country: None (occurrence: None)
  Receive Date: 20110128
  Receipt Date: 20101221
  Transmission Date: 20110831
  Serious: Yes (Hospitalization)
  Sender: FDA-Public Use
  Company Number: CH-BAYER-2010-006211

PATIENT
  Age: 72 Year
  Sex: Male
  Weight: 80 kg

DRUGS (10)
  1. AMPHOTERICIN B [Concomitant]
     Dosage: DAILY DOSE 1 DF
     Route: 048
     Dates: start: 20100802
  2. SANDIMMUNE [Concomitant]
     Dosage: DAILY DOSE 200 MG
     Route: 048
     Dates: start: 20100802
  3. BACTRIM [Concomitant]
     Dosage: DAILY DOSE .5 MG
     Route: 048
     Dates: start: 20100802
  4. CIPROXIN [Suspect]
     Indication: URINARY TRACT INFECTION
     Dosage: DAILY DOSE 500 MG
     Route: 048
     Dates: start: 20100807, end: 20100820
  5. PRAVASTATIN [Concomitant]
     Dosage: DAILY DOSE 40 MG
  6. CELLCEPT [Concomitant]
     Dosage: DAILY DOSE 1 G
     Dates: start: 20100802, end: 20101126
  7. NEXIUM [Concomitant]
     Dosage: DAILY DOSE 40 MG
     Dates: start: 20100802
  8. BELOC ZOK [Concomitant]
     Dosage: DAILY DOSE 50 MG
  9. PREDNISONE [Suspect]
     Dosage: DAILY DOSE 100 MG
     Route: 048
     Dates: start: 20100802, end: 20100805
  10. PREDNISONE [Suspect]
     Dosage: DAILY DOSE 40 MG
     Route: 048
     Dates: end: 20100820

REACTIONS (1)
  - TENDON RUPTURE [None]
